FAERS Safety Report 22270668 (Version 7)
Quarter: 2023Q4

REPORT INFORMATION
  Report Type: Report from Study
  Country: US (occurrence: None)
  Receive Date: 20230501
  Receipt Date: 20231109
  Transmission Date: 20240110
  Serious: Yes (Hospitalization)
  Sender: FDA-Public Use
  Company Number: US-ROCHE-3340440

PATIENT
  Age: 73 Year
  Sex: Female
  Weight: 80.5 kg

DRUGS (12)
  1. ATEZOLIZUMAB [Suspect]
     Active Substance: ATEZOLIZUMAB
     Indication: Non-small cell lung cancer metastatic
     Dosage: 60 MG/ML
     Route: 041
     Dates: start: 20230412
  2. EFINEPTAKIN ALFA [Suspect]
     Active Substance: EFINEPTAKIN ALFA
     Indication: Non-small cell lung cancer
     Dosage: 1200 MCG/KG?25 MG/ML
     Route: 030
     Dates: start: 20230412
  3. ALBUTEROL [Concomitant]
     Active Substance: ALBUTEROL
  4. IPRATROPIUM [Concomitant]
     Active Substance: IPRATROPIUM
  5. FLUTICASONE [Concomitant]
     Active Substance: FLUTICASONE
  6. ARIPIPRAZOLE [Concomitant]
     Active Substance: ARIPIPRAZOLE
  7. CLOPIDOGREL [Concomitant]
     Active Substance: CLOPIDOGREL BISULFATE
  8. DILTIAZEM [Concomitant]
     Active Substance: DILTIAZEM
  9. GABAPENTIN [Concomitant]
     Active Substance: GABAPENTIN
  10. CLONAZEPAM [Concomitant]
     Active Substance: CLONAZEPAM
  11. DULOXETINE [Concomitant]
     Active Substance: DULOXETINE
  12. OXYCODONE [Concomitant]
     Active Substance: OXYCODONE

REACTIONS (2)
  - Atrial fibrillation [Recovered/Resolved]
  - Toxic encephalopathy [Recovered/Resolved]

NARRATIVE: CASE EVENT DATE: 20230425
